FAERS Safety Report 6553814-6 (Version None)
Quarter: 2010Q1

REPORT INFORMATION
  Report Type: 
  Country: None (occurrence: None)
  Receive Date: 20100122
  Receipt Date: 20100106
  Transmission Date: 20100710
  Serious: Yes (Death, Hospitalization)
  Sender: FDA-Public Use
  Company Number: 2009AC000324

PATIENT
  Age: 87 Year
  Sex: Male

DRUGS (5)
  1. DIGOXIN [Suspect]
     Dosage: .25 MG; QD; PO
     Route: 048
  2. ARICEPT [Concomitant]
  3. CENTRUM [Concomitant]
  4. DILTIAZEM HCL [Concomitant]
  5. COUMADIN [Concomitant]

REACTIONS (6)
  - ATRIAL FIBRILLATION [None]
  - BRADYCARDIA [None]
  - ECONOMIC PROBLEM [None]
  - INJURY [None]
  - LOSS OF CONSCIOUSNESS [None]
  - SYNCOPE [None]
